FAERS Safety Report 10699402 (Version 2)
Quarter: 2015Q1

REPORT INFORMATION
  Report Type: Spontaneous
  Country: AR (occurrence: AR)
  Receive Date: 20150109
  Receipt Date: 20150127
  Transmission Date: 20150721
  Serious: Yes (Other)
  Sender: FDA-Public Use
  Company Number: AR-BEH-2014047468

PATIENT
  Age: 8 Year
  Sex: Female
  Weight: 26 kg

DRUGS (1)
  1. SANDOGLOBULIN [Suspect]
     Active Substance: HUMAN IMMUNOGLOBULIN G
     Indication: IMMUNODEFICIENCY COMMON VARIABLE
     Dosage: START DATE ??-OCT-2014
     Route: 042
     Dates: end: 20141205

REACTIONS (3)
  - Tachycardia [Recovered/Resolved]
  - Tremor [Recovered/Resolved]
  - Hypoxia [Recovered/Resolved]

NARRATIVE: CASE EVENT DATE: 20141205
